FAERS Safety Report 24792352 (Version 2)
Quarter: 2025Q1

REPORT INFORMATION
  Report Type: Report from Study
  Country: US (occurrence: US)
  Receive Date: 20241231
  Receipt Date: 20250102
  Transmission Date: 20250409
  Serious: No
  Sender: SANDOZ
  Company Number: US-SANDOZ-SDZ2024US106168

PATIENT
  Age: 14 Year
  Sex: Male

DRUGS (4)
  1. OMNITROPE [Suspect]
     Active Substance: SOMATROPIN
     Indication: Hypopituitarism
     Route: 065
  2. OMNITROPE [Suspect]
     Active Substance: SOMATROPIN
     Indication: Hypopituitarism
     Route: 065
  3. OMNITROPE [Suspect]
     Active Substance: SOMATROPIN
     Dosage: 1.9 MG, QD
     Route: 058
     Dates: start: 20241222
  4. OMNITROPE [Suspect]
     Active Substance: SOMATROPIN
     Dosage: 1.9 MG, QD
     Route: 058
     Dates: start: 20241222

REACTIONS (2)
  - Fear of injection [Unknown]
  - Injection site pain [Unknown]

NARRATIVE: CASE EVENT DATE: 20241222
